FAERS Safety Report 25256978 (Version 2)
Quarter: 2025Q2

REPORT INFORMATION
  Report Type: Spontaneous
  Country: CY (occurrence: CY)
  Receive Date: 20250430
  Receipt Date: 20250512
  Transmission Date: 20250716
  Serious: Yes (Other)
  Sender: NOVARTIS
  Company Number: CY-002147023-NVSC2025CY067429

PATIENT
  Age: 78 Year
  Sex: Male

DRUGS (1)
  1. PLUVICTO [Suspect]
     Active Substance: LUTETIUM LU-177 VIPIVOTIDE TETRAXETAN
     Indication: Hormone-refractory prostate cancer
     Route: 065
     Dates: start: 20241220, end: 202501

REACTIONS (5)
  - Prostatic specific antigen decreased [Unknown]
  - Metastasis [Unknown]
  - Prostate cancer metastatic [Unknown]
  - Therapeutic product effect incomplete [Unknown]
  - Product dose omission issue [Unknown]
